FAERS Safety Report 8502193-3 (Version None)
Quarter: 2012Q2

REPORT INFORMATION
  Report Type: 
  Country: None (occurrence: None)
  Receive Date: 20120405
  Receipt Date: 20101001
  Transmission Date: 20120825
  Serious: Yes (Life-Threatening)
  Sender: FDA-Public Use
  Company Number: PHHY2010US65769

PATIENT
  Age: 57 Year
  Sex: Female

DRUGS (3)
  1. CALCIUM CARBONATE [Concomitant]
  2. RECLAST [Suspect]
     Dosage: INFUSION
  3. SYNTHROID [Concomitant]

REACTIONS (7)
  - PRURITUS [None]
  - DISORIENTATION [None]
  - VOMITING [None]
  - DIZZINESS [None]
  - HEADACHE [None]
  - MALAISE [None]
  - URTICARIA [None]
